FAERS Safety Report 4555007-0 (Version None)
Quarter: 2004Q4

REPORT INFORMATION
  Report Type: 
  Country: None (occurrence: None)
  Receive Date: 20041217
  Receipt Date: 20040825
  Transmission Date: 20050328
  Serious: No
  Sender: FDA-Public Use
  Company Number: 2004-BP-07324BP(0)

PATIENT

DRUGS (1)
  1. SPIRIVA [Suspect]
     Dosage: NR (18 MCG), NR

REACTIONS (3)
  - DIZZINESS [None]
  - HYPOAESTHESIA [None]
  - LOSS OF CONSCIOUSNESS [None]
